FAERS Safety Report 12007534 (Version 2)
Quarter: 2016Q1

REPORT INFORMATION
  Report Type: Spontaneous
  Country: KR (occurrence: KR)
  Receive Date: 20160204
  Receipt Date: 20160215
  Transmission Date: 20160526
  Serious: Yes (Other)
  Sender: FDA-Public Use
  Company Number: KR-PFIZER INC-2016044057

PATIENT
  Age: 5 Decade
  Sex: Male

DRUGS (1)
  1. SUTENE [Suspect]
     Active Substance: SUNITINIB MALATE
     Indication: GASTROINTESTINAL STROMAL TUMOUR
     Dosage: 50 MG, UNK
     Route: 048
     Dates: start: 20151125, end: 20160126

REACTIONS (1)
  - Nasal septum perforation [Unknown]

NARRATIVE: CASE EVENT DATE: 20160126
